FAERS Safety Report 8428810-4 (Version None)
Quarter: 2012Q2

REPORT INFORMATION
  Report Type: 
  Country: None (occurrence: None)
  Receive Date: 20120612
  Receipt Date: 20120604
  Transmission Date: 20120825
  Serious: Yes (Other)
  Sender: FDA-Public Use
  Company Number: DK-GENZYME-THYM-1003264

PATIENT
  Age: 25 Year
  Sex: Female

DRUGS (7)
  1. THYMOGLOBULIN [Suspect]
     Indication: KIDNEY TRANSPLANT REJECTION
     Dosage: 100 MG, UNK
     Route: 042
  2. METHYLPREDNISOLONE [Concomitant]
     Indication: PRODUCT USED FOR UNKNOWN INDICATION
     Dosage: UNK
     Route: 042
  3. PREDNISOLONE [Concomitant]
     Indication: PRODUCT USED FOR UNKNOWN INDICATION
     Dosage: UNK
     Route: 048
  4. METHYLPREDNISOLONE [Concomitant]
     Dosage: 250 MG, UNK
     Route: 042
  5. THYMOGLOBULIN [Suspect]
     Dosage: 75 MG, UNK
     Route: 042
  6. CLEMASTINE [Concomitant]
     Indication: PRODUCT USED FOR UNKNOWN INDICATION
     Dosage: 2 MG, UNK
     Route: 065
  7. ACETAMINOPHEN [Concomitant]
     Indication: PRODUCT USED FOR UNKNOWN INDICATION
     Dosage: 1 G, UNK
     Route: 048

REACTIONS (2)
  - MALAISE [None]
  - RETINOPATHY [None]
